FAERS Safety Report 8501397-3 (Version None)
Quarter: 2012Q3

REPORT INFORMATION
  Report Type: 
  Country: None (occurrence: None)
  Receive Date: 20120710
  Receipt Date: 20120628
  Transmission Date: 20120928
  Serious: Yes (Other)
  Sender: FDA-Public Use
  Company Number: US-MYLANLABS-2012S1013241

PATIENT
  Age: 41 Year
  Sex: Female
  Weight: 54.43 kg

DRUGS (9)
  1. FENTANYL-100 [Suspect]
     Indication: ABDOMINAL PAIN
     Dosage: CHANGE Q48HR
     Route: 062
     Dates: start: 20120201
  2. ZENPEP [Concomitant]
     Route: 048
  3. PREMARIN [Concomitant]
     Route: 048
  4. BENTYL [Concomitant]
     Route: 048
  5. ZOFRAN [Concomitant]
     Route: 048
  6. PROZAC [Concomitant]
     Route: 048
  7. FENTANYL-100 [Suspect]
     Dosage: CHANGE Q48HR
     Route: 062
     Dates: start: 20120401
  8. HYOSCYAMINE [Concomitant]
     Route: 048
  9. REMERON [Concomitant]
     Route: 048

REACTIONS (6)
  - PAIN [None]
  - HYPOAESTHESIA [None]
  - HYPERVENTILATION [None]
  - DRUG INEFFECTIVE [None]
  - DRUG WITHDRAWAL SYNDROME [None]
  - DRUG SCREEN NEGATIVE [None]
